FAERS Safety Report 9804244 (Version 3)
Quarter: 2014Q2

REPORT INFORMATION
  Report Type: Spontaneous
  Country: US (occurrence: US)
  Receive Date: 20140108
  Receipt Date: 20140403
  Transmission Date: 20141212
  Serious: Yes (Hospitalization, Disabling)
  Sender: FDA-Public Use
  Company Number: US-009507513-1104USA02990

PATIENT
  Sex: Male
  Weight: 111.58 kg

DRUGS (3)
  1. PROPECIA [Suspect]
     Indication: ANDROGENETIC ALOPECIA
     Dosage: 1 MG, QD
     Route: 048
     Dates: start: 2006, end: 200808
  2. PROPECIA [Suspect]
     Dosage: 5 MG, UNK
     Route: 048
     Dates: start: 20070106
  3. PROPECIA [Suspect]
     Dosage: 1 MG, QD
     Route: 048
     Dates: start: 201105

REACTIONS (26)
  - Emotional distress [Not Recovered/Not Resolved]
  - Anxiety [Not Recovered/Not Resolved]
  - Transient ischaemic attack [Unknown]
  - Headache [Unknown]
  - Erectile dysfunction [Not Recovered/Not Resolved]
  - Sluggishness [Not Recovered/Not Resolved]
  - Amnesia [Not Recovered/Not Resolved]
  - Fatigue [Not Recovered/Not Resolved]
  - Incorrect dose administered [Unknown]
  - Disturbance in attention [Unknown]
  - Peritonsillar abscess [Unknown]
  - Palpitations [Not Recovered/Not Resolved]
  - Headache [Not Recovered/Not Resolved]
  - Spinal disorder [Unknown]
  - Dizziness [Unknown]
  - Cardiac murmur [Unknown]
  - Malaise [Unknown]
  - Neck pain [Unknown]
  - Rhinitis allergic [Unknown]
  - Back pain [Unknown]
  - Androgen deficiency [Unknown]
  - Exostosis [Unknown]
  - Abdominal discomfort [Unknown]
  - Ligament sprain [Unknown]
  - Adverse drug reaction [Unknown]
  - Depression [Not Recovered/Not Resolved]
